FAERS Safety Report 17872848 (Version 1)
Quarter: 2020Q2

REPORT INFORMATION
  Report Type: Spontaneous
  Country: JP (occurrence: JP)
  Receive Date: 20200608
  Receipt Date: 20200608
  Transmission Date: 20200714
  Serious: Yes (Other)
  Sender: FDA-Public Use
  Company Number: JP-GEHPL-2020JSU002312AA

PATIENT

DRUGS (5)
  1. OMNIPAQUE [Suspect]
     Active Substance: IOHEXOL
     Indication: EPIDURAL BLOOD PATCH
     Dosage: 5 ML, SINGLE
     Route: 037
  2. DEXMEDETOMIDINE HYDROCHLORIDE. [Suspect]
     Active Substance: DEXMEDETOMIDINE HYDROCHLORIDE
     Indication: SEDATION
  3. OMNIPAQUE [Suspect]
     Active Substance: IOHEXOL
     Indication: SUBDURAL HAEMATOMA
  4. DEXMEDETOMIDINE HYDROCHLORIDE. [Suspect]
     Active Substance: DEXMEDETOMIDINE HYDROCHLORIDE
     Indication: ANALGESIC THERAPY
     Dosage: 0.8 MICROGRAMS/KG/HR
     Route: 037
  5. OMNIPAQUE [Suspect]
     Active Substance: IOHEXOL
     Indication: SUBDURAL HAEMATOMA EVACUATION

REACTIONS (3)
  - Off label use [Unknown]
  - Subarachnoid haematoma [Recovered/Resolved]
  - Loss of consciousness [Recovered/Resolved]
